FAERS Safety Report 6424788-3 (Version None)
Quarter: 2009Q4

REPORT INFORMATION
  Report Type: 
  Country: None (occurrence: None)
  Receive Date: 20091029
  Receipt Date: 20090803
  Transmission Date: 20100525
  Serious: Yes (Death)
  Sender: FDA-Public Use
  Company Number: 204611USA

PATIENT
  Age: 64 Year
  Sex: Female

DRUGS (12)
  1. CALCIUM FOLINATE 100 MG BASE/VIAL (FOLINIC ACID) [Suspect]
     Indication: METASTASIS
     Dosage: EVERY TWO WEEKS, INTRAVENOUS
     Route: 042
     Dates: start: 20090612, end: 20090612
  2. CALCIUM FOLINATE 100 MG BASE/VIAL (FOLINIC ACID) [Suspect]
     Indication: OVARIAN CANCER
     Dosage: EVERY TWO WEEKS, INTRAVENOUS
     Route: 042
     Dates: start: 20090612, end: 20090612
  3. CALCIUM FOLINATE 100 MG BASE/VIAL (FOLINIC ACID) [Suspect]
     Indication: PANCREATIC CARCINOMA
     Dosage: EVERY TWO WEEKS, INTRAVENOUS
     Route: 042
     Dates: start: 20090612, end: 20090612
  4. FLUOROURACIL [Suspect]
     Indication: METASTASIS
     Dosage: INTRAVENOUS
     Route: 042
     Dates: start: 20090612, end: 20090612
  5. FLUOROURACIL [Suspect]
     Indication: OVARIAN CANCER
     Dosage: INTRAVENOUS
     Route: 042
     Dates: start: 20090612, end: 20090612
  6. FLUOROURACIL [Suspect]
     Indication: PANCREATIC CARCINOMA
     Dosage: INTRAVENOUS
     Route: 042
     Dates: start: 20090612, end: 20090612
  7. OXALIPLATIN [Suspect]
     Indication: METASTASIS
     Dosage: Q2W (163 MG), INTRAVENOUS
     Route: 042
     Dates: start: 20090612, end: 20090612
  8. OXALIPLATIN [Suspect]
     Indication: OVARIAN CANCER
     Dosage: Q2W (163 MG), INTRAVENOUS
     Route: 042
     Dates: start: 20090612, end: 20090612
  9. OXALIPLATIN [Suspect]
     Indication: PANCREATIC CARCINOMA
     Dosage: Q2W (163 MG), INTRAVENOUS
     Route: 042
     Dates: start: 20090612, end: 20090612
  10. ONDANSETRON [Concomitant]
  11. DRONABINOL [Concomitant]
  12. GEMCITABINE HCL [Concomitant]

REACTIONS (5)
  - ASCITES [None]
  - DISEASE PROGRESSION [None]
  - HEPATIC NEOPLASM MALIGNANT [None]
  - OVARIAN CANCER [None]
  - PANCREATIC CARCINOMA [None]
